FAERS Safety Report 7604136-3 (Version None)
Quarter: 2011Q2

REPORT INFORMATION
  Report Type: 
  Country: None (occurrence: None)
  Receive Date: 20110630
  Receipt Date: 20110615
  Transmission Date: 20111010
  Serious: Yes (Other)
  Sender: FDA-Public Use
  Company Number: AUR-APL-2011-01722

PATIENT
  Age: 5 Year
  Sex: Male

DRUGS (1)
  1. CEFTRIAXONE [Suspect]
     Indication: MENINGOCOCCAL BACTERAEMIA
     Dosage: 100 MG/KG (100 MG/KG, 1 D), INTRAVENOUS
     Route: 042
     Dates: start: 20110507, end: 20110509

REACTIONS (3)
  - SEPTIC SHOCK [None]
  - DRUG INEFFECTIVE [None]
  - LEUKOCYTOSIS [None]
